FAERS Safety Report 26186290 (Version 1)
Quarter: 2025Q4

REPORT INFORMATION
  Report Type: Spontaneous
  Country: US (occurrence: None)
  Receive Date: 20251221
  Receipt Date: 20251221
  Transmission Date: 20260117
  Serious: Yes (Disabling)
  Sender: FDA-CTU
  Company Number: None

PATIENT
  Age: 43 Year
  Sex: Female
  Weight: 84.6 kg

DRUGS (15)
  1. METRONIDAZOLE [Suspect]
     Active Substance: METRONIDAZOLE
     Indication: Bacterial vaginosis
     Dates: start: 20250910, end: 20250917
  2. TRAZODONE [Concomitant]
     Active Substance: TRAZODONE HYDROCHLORIDE
  3. SEMAGLUTIDE [Concomitant]
     Active Substance: SEMAGLUTIDE
  4. SERTRALINE [Concomitant]
     Active Substance: SERTRALINE HYDROCHLORIDE
  5. VITAMIN B1 [Concomitant]
     Active Substance: THIAMINE HYDROCHLORIDE
  6. B12 [Concomitant]
  7. Acetyl L carnitine [Concomitant]
  8. ALPHA LIPOIC ACID [Concomitant]
     Active Substance: .ALPHA.-LIPOIC ACID
  9. BIOTIN [Concomitant]
     Active Substance: BIOTIN
  10. VITAMIN C [Concomitant]
     Active Substance: ASCORBIC ACID
  11. VITAMIN D NOS [Concomitant]
     Active Substance: CHOLECALCIFEROL\ERGOCALCIFEROL
  12. PROBIOTICS NOS [Concomitant]
     Active Substance: PROBIOTICS NOS
  13. moringa [Concomitant]
  14. OMEGA 3 [Concomitant]
     Active Substance: CAPSAICIN
  15. MAGNESIUM GLYCINATE [Concomitant]
     Active Substance: MAGNESIUM GLYCINATE

REACTIONS (14)
  - Fatigue [None]
  - Eye irritation [None]
  - Lymphadenopathy [None]
  - Headache [None]
  - Neuropathy peripheral [None]
  - Nausea [None]
  - Oral contusion [None]
  - Skin exfoliation [None]
  - Myalgia [None]
  - Palpitations [None]
  - Diarrhoea [None]
  - Dizziness [None]
  - Brain fog [None]
  - Alcohol intolerance [None]

NARRATIVE: CASE EVENT DATE: 20250910
